FAERS Safety Report 10062880 (Version 1)
Quarter: 2014Q1

REPORT INFORMATION
  Report Type: Spontaneous
  Country: US (occurrence: None)
  Receive Date: 20140318
  Receipt Date: 20140318
  Transmission Date: 20141002
  Serious: Yes (Hospitalization, Other)
  Sender: FDA-Public Use
  Company Number: 163-21660-13081955

PATIENT
  Age: 71 Year
  Sex: Female

DRUGS (1)
  1. ABRAXANE [Suspect]
     Indication: BREAST CANCER FEMALE
     Dosage: UKNOWN-HOLD

REACTIONS (2)
  - Cerebrovascular accident [None]
  - Bronchitis [None]
